FAERS Safety Report 10519566 (Version 1)
Quarter: 2014Q4

REPORT INFORMATION
  Report Type: Spontaneous
  Country: US (occurrence: None)
  Receive Date: 20141014
  Receipt Date: 20141014
  Transmission Date: 20150528
  Serious: Yes (Hospitalization)
  Sender: FDA-Public Use
  Company Number: None

PATIENT
  Age: 69 Year
  Sex: Male
  Weight: 94.7 kg

DRUGS (1)
  1. QUETIAPINE [Suspect]
     Active Substance: QUETIAPINE
     Dosage: MG PO
     Route: 048
     Dates: start: 20131220, end: 20131221

REACTIONS (4)
  - Loss of consciousness [None]
  - Hypovolaemia [None]
  - Hypophagia [None]
  - Orthostatic hypotension [None]

NARRATIVE: CASE EVENT DATE: 20140320
